FAERS Safety Report 21687584 (Version 1)
Quarter: 2022Q4

REPORT INFORMATION
  Report Type: Spontaneous
  Country: JP (occurrence: JP)
  Receive Date: 20221206
  Receipt Date: 20221206
  Transmission Date: 20230113
  Serious: Yes (Hospitalization, Other)
  Sender: FDA-Public Use
  Company Number: JP-ELI_LILLY_AND_COMPANY-JP202211014189

PATIENT
  Age: 81 Year
  Sex: Male
  Weight: 51 kg

DRUGS (2)
  1. CYRAMZA [Suspect]
     Active Substance: RAMUCIRUMAB
     Indication: Gastric cancer stage II
     Dosage: 8 MG/KG, UNKNOWN
     Route: 041
  2. PACLITAXEL [Concomitant]
     Active Substance: PACLITAXEL
     Indication: Gastric cancer stage II
     Dosage: 80 MG/M2, UNKNOWN
     Route: 065

REACTIONS (8)
  - Urethritis [Unknown]
  - Depressed level of consciousness [Recovering/Resolving]
  - Hypercalcaemia [Recovering/Resolving]
  - Renal impairment [Recovering/Resolving]
  - Hyperparathyroidism [Recovering/Resolving]
  - Neuropathy peripheral [Unknown]
  - Blood pressure increased [Unknown]
  - Platelet count decreased [Unknown]
